FAERS Safety Report 7702787-9 (Version None)
Quarter: 2011Q3

REPORT INFORMATION
  Report Type: 
  Country: None (occurrence: None)
  Receive Date: 20110823
  Receipt Date: 20110811
  Transmission Date: 20111222
  Serious: Yes (Other)
  Sender: FDA-Public Use
  Company Number: CA-JNJFOC-20110806721

PATIENT
  Age: 32 Year
  Sex: Female
  Weight: 62 kg

DRUGS (4)
  1. REMICADE [Suspect]
     Indication: COLITIS ULCERATIVE
     Route: 042
  2. PREDNISONE [Concomitant]
     Route: 065
  3. IMURAN [Concomitant]
     Route: 065
  4. ANTIHISTAMINE [Concomitant]
     Indication: SEASONAL ALLERGY
     Route: 065

REACTIONS (5)
  - LARGE INTESTINAL ULCER [None]
  - DRY MOUTH [None]
  - FATIGUE [None]
  - MYALGIA [None]
  - PRURITUS [None]
